FAERS Safety Report 5028596-X (Version None)
Quarter: 2006Q2

REPORT INFORMATION
  Report Type: 
  Country: None (occurrence: None)
  Receive Date: 20060615
  Receipt Date: 20060615
  Transmission Date: 20061013
  Serious: Yes (Death, Life-Threatening)
  Sender: FDA-Public Use
  Company Number: None

PATIENT
  Age: 59 Year
  Sex: Male
  Weight: 72 kg

DRUGS (10)
  1. HYDROMORPHONE HCL [Suspect]
     Indication: ABDOMINAL PAIN
     Dosage: 1MG  IV  X1
     Route: 042
     Dates: start: 20060421
  2. COUMADIN [Concomitant]
  3. PROTONIX [Concomitant]
  4. NORVASC [Concomitant]
  5. FLOMAX [Concomitant]
  6. TOPROL-XL [Concomitant]
  7. PREDNISONE [Concomitant]
  8. CLONAZEPAM [Concomitant]
  9. ASPIRIN [Concomitant]
  10. ALLOPURINOL [Concomitant]

REACTIONS (6)
  - BLOOD PRESSURE DECREASED [None]
  - GENERAL PHYSICAL HEALTH DETERIORATION [None]
  - ILL-DEFINED DISORDER [None]
  - INTESTINAL ISCHAEMIA [None]
  - SEPSIS [None]
  - TACHYCARDIA [None]
